FAERS Safety Report 7125367-5 (Version None)
Quarter: 2010Q4

REPORT INFORMATION
  Report Type: 
  Country: None (occurrence: None)
  Receive Date: 20101129
  Receipt Date: 20101116
  Transmission Date: 20110411
  Serious: Yes (Hospitalization, Other)
  Sender: FDA-Public Use
  Company Number: US-ROCHE-722759

PATIENT
  Sex: Female
  Weight: 72.6 kg

DRUGS (12)
  1. ACCUTANE [Suspect]
     Dosage: STRENGTH: 20 MG AND 40 MG
     Route: 065
     Dates: start: 19921119
  2. ACCUTANE [Suspect]
     Dosage: 40 MG IN THE MORNING AND 20 MG IN EVENING
     Route: 065
     Dates: start: 19930211
  3. ACCUTANE [Suspect]
     Route: 065
     Dates: start: 19930525, end: 19930927
  4. MINOCIN [Concomitant]
     Indication: ACNE
  5. RETIN-A [Concomitant]
  6. A/T/S [Concomitant]
     Route: 061
  7. CECLOR [Concomitant]
  8. RU-TUSS DE [Concomitant]
  9. CEPHALEXIN [Concomitant]
  10. GUAIMAX-D [Concomitant]
  11. MEDROL [Concomitant]
  12. ORTHO TRI-CYCLEN [Concomitant]

REACTIONS (7)
  - CEREBROVASCULAR ACCIDENT [None]
  - COLITIS ULCERATIVE [None]
  - DEPRESSION [None]
  - GASTROINTESTINAL INJURY [None]
  - INFLAMMATORY BOWEL DISEASE [None]
  - ORAL HERPES [None]
  - VASCULITIS CEREBRAL [None]
